FAERS Safety Report 8796795 (Version 5)
Quarter: 2013Q4

REPORT INFORMATION
  Report Type: Spontaneous
  Country: US (occurrence: US)
  Receive Date: 20120919
  Receipt Date: 20131024
  Transmission Date: 20140711
  Serious: Yes (Hospitalization, Other)
  Sender: FDA-Public Use
  Company Number: US-009507513-1203USA01072

PATIENT
  Sex: Female

DRUGS (3)
  1. FOSAMAX [Suspect]
     Indication: OSTEOPENIA
     Dosage: 70 MG, QW
     Route: 048
     Dates: start: 2002, end: 2010
  2. ACTONEL [Suspect]
     Indication: OSTEOPENIA
     Dosage: UNK
     Dates: start: 2002, end: 2004
  3. ALENDRONATE SODIUM [Suspect]
     Indication: OSTEOPENIA
     Dosage: 70 MG, QW
     Route: 048
     Dates: start: 20080802, end: 20100629

REACTIONS (16)
  - Femur fracture [Unknown]
  - Open reduction of fracture [Unknown]
  - Fall [Unknown]
  - Anaemia [Unknown]
  - Insomnia [Unknown]
  - Upper limb fracture [Unknown]
  - Fall [Unknown]
  - Appendicectomy [Unknown]
  - Low turnover osteopathy [Unknown]
  - Dental implantation [Unknown]
  - Spinal osteoarthritis [Unknown]
  - Anxiety [Unknown]
  - Depression [Unknown]
  - Hypertension [Unknown]
  - Hypercholesterolaemia [Unknown]
  - Back pain [Unknown]
